FAERS Safety Report 8254441-5 (Version None)
Quarter: 2012Q2

REPORT INFORMATION
  Report Type: 
  Country: None (occurrence: None)
  Receive Date: 20120403
  Receipt Date: 20120323
  Transmission Date: 20120825
  Serious: Yes (Hospitalization)
  Sender: FDA-Public Use
  Company Number: BE-BRISTOL-MYERS SQUIBB COMPANY-16398901

PATIENT
  Age: 74 Year
  Sex: Male
  Weight: 74 kg

DRUGS (4)
  1. GEMCITABINE [Suspect]
     Indication: NON-SMALL CELL LUNG CANCER
     Dosage: 1 AND DAY 8 OF EACH 3-WEEK CYCLE
     Route: 042
     Dates: start: 20111213, end: 20120131
  2. CETUXIMAB [Suspect]
     Indication: NON-SMALL CELL LUNG CANCER
     Dosage: CETUXIMAB 5MG/ML
     Route: 042
     Dates: start: 20111213, end: 20120131
  3. CISPLATIN [Suspect]
     Indication: NON-SMALL CELL LUNG CANCER
     Dosage: RECENT INF ON 24-JAN-2012
     Route: 042
     Dates: start: 20111213, end: 20120124
  4. VINORELBINE [Suspect]
     Indication: NON-SMALL CELL LUNG CANCER
     Dosage: 1 AND DAY 8 OF EACH 3WEEK CYCLE
     Route: 042

REACTIONS (1)
  - DIVERTICULITIS [None]
